FAERS Safety Report 20743745 (Version 1)
Quarter: 2022Q2

REPORT INFORMATION
  Report Type: Spontaneous
  Country: US (occurrence: US)
  Receive Date: 20220425
  Receipt Date: 20220425
  Transmission Date: 20220721
  Serious: No
  Sender: FDA-Public Use
  Company Number: US-TEVA-2022-US-2025488

PATIENT
  Sex: Male

DRUGS (1)
  1. TESTOSTERONE CYPIONATE [Suspect]
     Active Substance: TESTOSTERONE CYPIONATE
     Dosage: 200 MG / ML
     Route: 065

REACTIONS (4)
  - Injection site pain [Unknown]
  - Product deposit [Unknown]
  - Product use complaint [Unknown]
  - Poor quality product administered [Unknown]
